FAERS Safety Report 7103099-7 (Version None)
Quarter: 2010Q4

REPORT INFORMATION
  Report Type: 
  Country: None (occurrence: None)
  Receive Date: 20101115
  Receipt Date: 20080916
  Transmission Date: 20110411
  Serious: No
  Sender: FDA-Public Use
  Company Number: US-KINGPHARMUSA00001-K200801101

PATIENT
  Sex: Female
  Weight: 56.689 kg

DRUGS (2)
  1. SONATA [Suspect]
     Indication: INSOMNIA
     Dosage: 10 MG, UNK
     Route: 048
     Dates: end: 20080801
  2. BIRTH CONTROL [Concomitant]

REACTIONS (1)
  - HALLUCINATION, VISUAL [None]
